FAERS Safety Report 14917934 (Version 1)
Quarter: 2018Q2

REPORT INFORMATION
  Report Type: Spontaneous
  Country: US (occurrence: US)
  Receive Date: 20180501
  Receipt Date: 20180501
  Transmission Date: 20180711
  Serious: Yes (Death, Hospitalization)
  Sender: FDA-Public Use
  Company Number: None

PATIENT
  Age: 69 Year
  Sex: Male
  Weight: 85.5 kg

DRUGS (1)
  1. PEMBROLIZUMAB. [Suspect]
     Active Substance: PEMBROLIZUMAB
     Indication: TRANSITIONAL CELL CARCINOMA
     Dosage: ?          OTHER FREQUENCY:PER CHEMO SCHEDULE;?
     Route: 042
     Dates: start: 20171113, end: 20180323

REACTIONS (7)
  - Mental status changes [None]
  - Supraventricular tachycardia [None]
  - Asthenia [None]
  - Chest pain [None]
  - Fatigue [None]
  - Cerebral infarction [None]
  - Cardiomyopathy [None]

NARRATIVE: CASE EVENT DATE: 20180325
